FAERS Safety Report 5488498-1 (Version None)
Quarter: 2007Q4

REPORT INFORMATION
  Report Type: 
  Country: None (occurrence: None)
  Receive Date: 20071005
  Receipt Date: 20070822
  Transmission Date: 20080405
  Serious: No
  Sender: FDA-Public Use
  Company Number: PHEH2007US11563

PATIENT
  Sex: Female

DRUGS (9)
  1. TEKTURNA [Suspect]
     Indication: HYPERTENSION
     Dosage: 150 MG, QD, ORAL
     Route: 048
     Dates: start: 20070814, end: 20070817
  2. PREMARIN [Concomitant]
  3. LEVOXYL [Concomitant]
  4. COMBIVENT /GFR/ (IPRATROPIUM BROMIDE, SALBUTAMOL SULFATE) [Concomitant]
  5. PHOSLO [Concomitant]
  6. ACETYLSALICYLIC ACID SRT [Concomitant]
  7. BYETTA (EXENATIDE) [Concomitant]
  8. AMBIEN [Concomitant]
  9. PRIMIDONE [Concomitant]

REACTIONS (1)
  - STOMATITIS [None]
